FAERS Safety Report 13946283 (Version 1)
Quarter: 2017Q3

REPORT INFORMATION
  Report Type: Spontaneous
  Country: AT (occurrence: AT)
  Receive Date: 20170907
  Receipt Date: 20170907
  Transmission Date: 20171128
  Serious: Yes (Other)
  Sender: FDA-Public Use
  Company Number: AT-FRESENIUS KABI-FK201707309

PATIENT
  Age: 65 Year
  Sex: Male

DRUGS (2)
  1. LINEZOLID (MANUFACTURER UNKNOWN) [Suspect]
     Active Substance: LINEZOLID
     Indication: STAPHYLOCOCCUS TEST
     Route: 065
  2. AMOXICILLIN/CLAVULANIC ACID [Suspect]
     Active Substance: AMOXICILLIN\CLAVULANIC ACID
     Indication: C-REACTIVE PROTEIN INCREASED

REACTIONS (2)
  - Rhabdomyolysis [Recovered/Resolved]
  - Renal impairment [Recovered/Resolved]
